FAERS Safety Report 24243198 (Version 3)
Quarter: 2024Q4

REPORT INFORMATION
  Report Type: Report from Study
  Country: AU (occurrence: AU)
  Receive Date: 20240823
  Receipt Date: 20241111
  Transmission Date: 20250114
  Serious: Yes (Death, Hospitalization, Other)
  Sender: UCB
  Company Number: AU-UCBSA-2024042528

PATIENT
  Age: 41 Year
  Sex: Female
  Weight: 62 kg

DRUGS (1)
  1. FENFLURAMINE HYDROCHLORIDE [Suspect]
     Active Substance: FENFLURAMINE HYDROCHLORIDE
     Indication: Lennox-Gastaut syndrome
     Dosage: 6 MILLILITER, 2X/DAY (BID)
     Dates: end: 20241028

REACTIONS (6)
  - Pneumonia aspiration [Fatal]
  - Pneumonia [Not Recovered/Not Resolved]
  - Colitis [Unknown]
  - Pleural effusion [Not Recovered/Not Resolved]
  - Device related infection [Recovered/Resolved]
  - Abdominal distension [Unknown]

NARRATIVE: CASE EVENT DATE: 20240808
